FAERS Safety Report 11330270 (Version 6)
Quarter: 2016Q2

REPORT INFORMATION
  Report Type: Report from Study
  Country: CA (occurrence: CA)
  Receive Date: 20150803
  Receipt Date: 20160612
  Transmission Date: 20160815
  Serious: Yes (Death, Hospitalization, Other)
  Sender: FDA-Public Use
  Company Number: CA-ROCHE-ITM201504IM013023

PATIENT
  Age: 57 Year
  Sex: Female
  Weight: 76.2 kg

DRUGS (25)
  1. VENTOLIN [Concomitant]
     Active Substance: ALBUTEROL SULFATE
  2. PREGABALIN. [Concomitant]
     Active Substance: PREGABALIN
  3. ESBRIET [Suspect]
     Active Substance: PIRFENIDONE
     Route: 048
     Dates: start: 20150410, end: 20150630
  4. OLANZAPINE. [Concomitant]
     Active Substance: OLANZAPINE
  5. ATORVASTATIN [Concomitant]
     Active Substance: ATORVASTATIN
  6. CLAVULIN [Concomitant]
     Active Substance: AMOXICILLIN\CLAVULANIC ACID
  7. NAPROXEN. [Concomitant]
     Active Substance: NAPROXEN
  8. CLONAZEPAM. [Concomitant]
     Active Substance: CLONAZEPAM
  9. ESBRIET [Suspect]
     Active Substance: PIRFENIDONE
     Route: 048
     Dates: start: 20150403
  10. ESBRIET [Suspect]
     Active Substance: PIRFENIDONE
     Route: 048
     Dates: start: 20150607
  11. SYMBICORT [Concomitant]
     Active Substance: BUDESONIDE\FORMOTEROL FUMARATE DIHYDRATE
  12. VENLAFAXINE [Concomitant]
     Active Substance: VENLAFAXINE HYDROCHLORIDE
  13. OXYGEN. [Concomitant]
     Active Substance: OXYGEN
  14. PREDNISONE. [Concomitant]
     Active Substance: PREDNISONE
  15. ESBRIET [Suspect]
     Active Substance: PIRFENIDONE
     Indication: IDIOPATHIC PULMONARY FIBROSIS
     Route: 048
     Dates: start: 20150327
  16. MORPHINE [Concomitant]
     Active Substance: MORPHINE
  17. SEEBRI [Concomitant]
     Active Substance: GLYCOPYRRONIUM
  18. OXYCOCET [Concomitant]
     Active Substance: ACETAMINOPHEN\OXYCODONE HYDROCHLORIDE
     Dosage: AS REQUIRED
     Route: 065
  19. QUETIAPINE. [Concomitant]
     Active Substance: QUETIAPINE
  20. N-ACETYLCYSTEINE [Concomitant]
     Active Substance: ACETYLCYSTEINE
  21. TRAZODONE [Concomitant]
     Active Substance: TRAZODONE HYDROCHLORIDE
  22. METFORMIN [Concomitant]
     Active Substance: METFORMIN HYDROCHLORIDE
  23. LEVOCARB [Concomitant]
     Active Substance: CARBIDOPA\LEVODOPA
  24. ELAVIL [Concomitant]
     Active Substance: AMITRIPTYLINE HYDROCHLORIDE
  25. TECTA [Concomitant]
     Active Substance: PANTOPRAZOLE MAGNESIUM

REACTIONS (10)
  - Death [Fatal]
  - Dizziness [Unknown]
  - Confusional state [Unknown]
  - Drug dose omission [Unknown]
  - Nausea [Unknown]
  - Blood pressure decreased [Recovered/Resolved]
  - Weight increased [Unknown]
  - Blood glucose decreased [Unknown]
  - Accidental overdose [Unknown]
  - Blood glucose increased [Recovered/Resolved]

NARRATIVE: CASE EVENT DATE: 20150629
